FAERS Safety Report 6285870-7 (Version None)
Quarter: 2009Q3

REPORT INFORMATION
  Report Type: 
  Country: None (occurrence: None)
  Receive Date: 20090728
  Receipt Date: 20090722
  Transmission Date: 20100115
  Serious: Yes (Hospitalization)
  Sender: FDA-Public Use
  Company Number: US-WYE-H10081709

PATIENT
  Sex: Male

DRUGS (4)
  1. TYGACIL [Suspect]
     Indication: CELLULITIS
     Dosage: 100 MG DOSE FOLLOWED BY 50 MG TWICE A DAY
     Route: 042
     Dates: start: 20090526, end: 20090630
  2. LOPRESSOR [Concomitant]
     Route: 048
  3. NEPHRO-VITE RX [Concomitant]
     Dosage: ONCE DAILY
     Route: 048
  4. PROCARDIA [Concomitant]

REACTIONS (6)
  - ALANINE AMINOTRANSFERASE INCREASED [None]
  - ASPARTATE AMINOTRANSFERASE INCREASED [None]
  - BLOOD ALKALINE PHOSPHATASE INCREASED [None]
  - BLOOD BILIRUBIN INCREASED [None]
  - CHOLANGITIS [None]
  - CHOLESTASIS [None]
